FAERS Safety Report 24819000 (Version 7)
Quarter: 2025Q1

REPORT INFORMATION
  Report Type: Spontaneous
  Country: US (occurrence: US)
  Receive Date: 20250108
  Receipt Date: 20250317
  Transmission Date: 20250408
  Serious: No
  Sender: PFIZER
  Company Number: US-PFIZER INC-202500001990

PATIENT
  Age: 12 Year
  Sex: Female
  Weight: 40.82 kg

DRUGS (2)
  1. GENOTROPIN [Suspect]
     Active Substance: SOMATROPIN
     Indication: Growth hormone deficiency
     Dosage: 1.6 MG, NIGHTLY AT BED TIME, EVERY NIGHT
     Route: 058
     Dates: start: 202411
  2. FLUTICASONE [Concomitant]
     Active Substance: FLUTICASONE
     Indication: Seasonal allergy

REACTIONS (4)
  - Device delivery system issue [Unknown]
  - Device mechanical issue [Unknown]
  - Device leakage [Unknown]
  - Drug dose omission by device [Unknown]
